FAERS Safety Report 5026599-2 (Version None)
Quarter: 2006Q2

REPORT INFORMATION
  Report Type: 
  Country: None (occurrence: None)
  Receive Date: 20060613
  Receipt Date: 20060613
  Transmission Date: 20061013
  Serious: Yes (Death, Hospitalization)
  Sender: FDA-Public Use
  Company Number: None

PATIENT
  Sex: Male

DRUGS (13)
  1. SODIUM  POLYSTERENE SULFONATE [Suspect]
     Indication: LARGE INTESTINE PERFORATION
  2. SODIUM  POLYSTERENE SULFONATE [Suspect]
     Indication: SEPSIS
  3. AMLODIPINE [Concomitant]
  4. CALCIUM CARBONATE [Concomitant]
  5. BUPROPION HCL [Concomitant]
  6. URSODIOL [Concomitant]
  7. LISINOPRIL [Concomitant]
  8. METFORMIN HCL [Concomitant]
  9. ROSIGLITAZONE [Concomitant]
  10. ASPIRIN [Concomitant]
  11. LANTUS [Concomitant]
  12. ATORVASTATIN CALCIUM [Concomitant]
  13. FUROSEMIDE [Concomitant]

REACTIONS (12)
  - ABDOMINAL PAIN [None]
  - ACIDOSIS [None]
  - ENTEROCOLITIS INFECTIOUS [None]
  - GENERAL PHYSICAL HEALTH DETERIORATION [None]
  - HYPOXIA [None]
  - LARGE INTESTINE PERFORATION [None]
  - MENTAL STATUS CHANGES [None]
  - NAUSEA [None]
  - RENAL FAILURE ACUTE [None]
  - RESPIRATORY RATE INCREASED [None]
  - SEPSIS [None]
  - VOMITING [None]
